FAERS Safety Report 24912114 (Version 1)
Quarter: 2025Q1

REPORT INFORMATION
  Report Type: Report from Study
  Country: AE (occurrence: AE)
  Receive Date: 20250131
  Receipt Date: 20250131
  Transmission Date: 20250409
  Serious: Yes (Hospitalization, Other)
  Sender: DAIICHI
  Company Number: AE-AstraZeneca-CH-00791559A

PATIENT
  Sex: Female

DRUGS (1)
  1. ENHERTU [Suspect]
     Active Substance: FAM-TRASTUZUMAB DERUXTECAN-NXKI
     Indication: Breast cancer
     Dosage: 300 MG, ONCE EVERY 3 WK
     Route: 041
     Dates: start: 202411

REACTIONS (1)
  - Coma [Unknown]

NARRATIVE: CASE EVENT DATE: 20250101
